FAERS Safety Report 6490519-4 (Version None)
Quarter: 2009Q4

REPORT INFORMATION
  Report Type: 
  Country: None (occurrence: None)
  Receive Date: 20091210
  Receipt Date: 20091210
  Transmission Date: 20100525
  Serious: Yes (Hospitalization)
  Sender: FDA-Public Use
  Company Number: None

PATIENT
  Sex: Male

DRUGS (9)
  1. RAMIPRIL [Suspect]
     Indication: HYPERTENSION
     Dosage: 5 MG, 1 IN 1 D, ORAL
     Route: 048
  2. ATENOLOL [Suspect]
     Indication: HYPERTENSION
     Dosage: 50 MG, 1 IN 1 D
  3. SEROQUEL [Suspect]
     Indication: PSYCHOTIC DISORDER
     Dosage: 600 MG, 2 IN 1 D
     Dates: start: 20090101
  4. SEROQUEL [Suspect]
     Indication: PSYCHOTIC DISORDER
     Dosage: 400 MG, 1 IN 1 D
     Dates: start: 20090101
  5. SEROQUEL [Suspect]
     Indication: PSYCHOTIC DISORDER
     Dosage: 500 MG, 1 IN 1 D
     Dates: start: 20090101
  6. SEROQUEL [Suspect]
     Indication: PSYCHOTIC DISORDER
     Dates: start: 20090101
  7. ASPIRIN [Concomitant]
  8. PARACETAMOL [Concomitant]
  9. PAROXETINE HCL [Concomitant]

REACTIONS (6)
  - FALL [None]
  - HYPERTENSION [None]
  - HYPOTENSION [None]
  - INCORRECT DOSE ADMINISTERED [None]
  - SYNCOPE [None]
  - TREATMENT NONCOMPLIANCE [None]
